FAERS Safety Report 7145813 (Version 10)
Quarter: 2013Q3

REPORT INFORMATION
  Report Type: Spontaneous
  Country: US (occurrence: None)
  Receive Date: 20090929
  Receipt Date: 20130912
  Transmission Date: 20140515
  Serious: Yes (Hospitalization, Disabling, Other)
  Sender: FDA-Public Use
  Company Number: CIP09002577

PATIENT
  Age: 87 Year
  Sex: Female
  Weight: 58 kg

DRUGS (11)
  1. ACTONEL (RISEDRONATE SODIUM) TABLET, 150MG [Suspect]
     Indication: OSTEOPENIA
     Route: 048
     Dates: start: 20081001, end: 20090301
  2. ACTONEL (RISEDRONATE SODIUM) TABLET, 150MG [Suspect]
     Indication: OSTEOPOROSIS
     Route: 048
     Dates: start: 20081001, end: 20090301
  3. ACTONEL (RISEDRONATE SODIUM) TABLET, 35MG [Suspect]
     Indication: OSTEOPENIA
     Route: 048
     Dates: end: 200903
  4. TENORMIN [Concomitant]
     Indication: OSTEOPENIA
  5. NORVASC [Concomitant]
  6. ATIVAN [Concomitant]
  7. SYNTHROID [Concomitant]
  8. BABY ASPIRIN (ACETYSALICYLIC ACID) [Concomitant]
  9. DIGOXIN (DIGOXIN) [Concomitant]
  10. ATENOLOL (ATENOLOL) [Concomitant]
  11. TYLENOL /00020001/ (PARACETAMOL) [Concomitant]

REACTIONS (32)
  - Neurodegenerative disorder [None]
  - Loss of control of legs [None]
  - Fall [None]
  - Neuropathy peripheral [None]
  - Bone pain [None]
  - Myalgia [None]
  - Tendon pain [None]
  - Osteonecrosis of jaw [None]
  - Tooth loss [None]
  - Bone loss [None]
  - Abscess neck [None]
  - Tooth abscess [None]
  - Skin mass [None]
  - Scab [None]
  - Pruritus [None]
  - Pain in jaw [None]
  - Clostridial infection [None]
  - Primary sequestrum [None]
  - Osteitis [None]
  - Excessive granulation tissue [None]
  - Gingivitis [None]
  - Connective tissue inflammation [None]
  - Bone fragmentation [None]
  - Arthralgia [None]
  - Pain in extremity [None]
  - Abasia [None]
  - Immobile [None]
  - Limb asymmetry [None]
  - Bone erosion [None]
  - Joint crepitation [None]
  - Anxiety [None]
  - Pruritus [None]
